FAERS Safety Report 19120625 (Version 1)
Quarter: 2021Q2

REPORT INFORMATION
  Report Type: Spontaneous
  Country: US (occurrence: US)
  Receive Date: 20210412
  Receipt Date: 20210412
  Transmission Date: 20210717
  Serious: No
  Sender: FDA-Public Use
  Company Number: None

PATIENT
  Age: 37 Year
  Sex: Male

DRUGS (1)
  1. ATORVASTATIN (ASTORVASTATIIN CA 40MG TAB) [Suspect]
     Active Substance: ATORVASTATIN CALCIUM
     Indication: CARDIAC OPERATION
     Route: 048
     Dates: start: 20201127, end: 20210330

REACTIONS (1)
  - Myalgia [None]

NARRATIVE: CASE EVENT DATE: 20210330
